FAERS Safety Report 6312384-8 (Version None)
Quarter: 2009Q3

REPORT INFORMATION
  Report Type: 
  Country: None (occurrence: None)
  Receive Date: 20090813
  Receipt Date: 20090805
  Transmission Date: 20100115
  Serious: Yes (Hospitalization)
  Sender: FDA-Public Use
  Company Number: MSTR-NO-0908S-0144

PATIENT
  Age: 67 Year
  Sex: Male
  Weight: 54.6 kg

DRUGS (1)
  1. METASTRON [Suspect]
     Indication: METASTATIC PAIN
     Dosage: , SINGLE DOSE, I.V.
     Route: 042
     Dates: start: 20080805, end: 20080805

REACTIONS (4)
  - ANAEMIA [None]
  - DISEASE PROGRESSION [None]
  - PROSTATE CANCER [None]
  - PYREXIA [None]
